FAERS Safety Report 5217470-1 (Version None)
Quarter: 2007Q1

REPORT INFORMATION
  Report Type: 
  Country: None (occurrence: None)
  Receive Date: 20070124
  Receipt Date: 20070117
  Transmission Date: 20070707
  Serious: Yes (Other)
  Sender: FDA-Public Use
  Company Number: US-JNJFOC-20061201795

PATIENT
  Sex: Female
  Weight: 42 kg

DRUGS (11)
  1. REMICADE [Suspect]
     Route: 042
  2. REMICADE [Suspect]
     Indication: CROHN'S DISEASE
     Dosage: 1 INFUSION ON UNKNOWN DATE
     Route: 042
  3. PREDNISONE TAB [Concomitant]
     Indication: CROHN'S DISEASE
  4. IMURAN [Concomitant]
     Indication: CROHN'S DISEASE
  5. PENTASA [Concomitant]
     Indication: CROHN'S DISEASE
  6. FLAGYL [Concomitant]
     Indication: CROHN'S DISEASE
  7. NIFEREX [Concomitant]
     Indication: CROHN'S DISEASE
  8. TUMS [Concomitant]
  9. M.V.I. [Concomitant]
  10. TYLENOL [Concomitant]
     Indication: PREMEDICATION
  11. BENADRYL [Concomitant]
     Indication: PREMEDICATION
     Route: 048

REACTIONS (1)
  - INFUSION RELATED REACTION [None]
